FAERS Safety Report 5084051-2 (Version None)
Quarter: 2006Q3

REPORT INFORMATION
  Report Type: 
  Country: None (occurrence: None)
  Receive Date: 20060819
  Receipt Date: 20060808
  Transmission Date: 20061208
  Serious: Yes (Other)
  Sender: FDA-Public Use
  Company Number: US-ALLERGAN-0603605US

PATIENT
  Age: 6 Week
  Sex: Male
  Weight: 4.6 kg

DRUGS (3)
  1. ALPHAGAN P [Suspect]
     Indication: DEVELOPMENTAL GLAUCOMA
     Route: 047
  2. VOLTAREN /00372301/ [Concomitant]
     Indication: DRUG USE FOR UNKNOWN INDICATION
     Route: 047
  3. CYCLOGYL                           /00157502/ [Concomitant]
     Indication: DRUG USE FOR UNKNOWN INDICATION
     Route: 047

REACTIONS (6)
  - APNOEA [None]
  - BRADYCARDIA [None]
  - CYANOSIS [None]
  - HYPOTENSION [None]
  - RESPIRATORY DEPRESSION [None]
  - SOMNOLENCE [None]
